FAERS Safety Report 13551644 (Version 1)
Quarter: 2017Q2

REPORT INFORMATION
  Report Type: Spontaneous
  Country: US (occurrence: US)
  Receive Date: 20170516
  Receipt Date: 20170516
  Transmission Date: 20170830
  Serious: Yes (Hospitalization, Other)
  Sender: FDA-Public Use
  Company Number: US-BRISTOL-MYERS SQUIBB COMPANY-BMS-2017-040992

PATIENT
  Age: 39 Year
  Sex: Male

DRUGS (1)
  1. WARFARIN SODIUM. [Suspect]
     Active Substance: WARFARIN SODIUM
     Indication: PULMONARY EMBOLISM
     Route: 065

REACTIONS (5)
  - Fasciotomy [Recovering/Resolving]
  - Compartment syndrome [Recovering/Resolving]
  - Haematoma [Recovering/Resolving]
  - Haematoma evacuation [Recovering/Resolving]
  - Surgery [Recovering/Resolving]
